FAERS Safety Report 14456899 (Version 2)
Quarter: 2018Q1

REPORT INFORMATION
  Report Type: Report from Study
  Country: IT (occurrence: IT)
  Receive Date: 20180130
  Receipt Date: 20180307
  Transmission Date: 20180509
  Serious: Yes (Hospitalization)
  Sender: FDA-Public Use
  Company Number: IT-OTSUKA-2017_028832

PATIENT
  Age: 36 Year
  Sex: Male
  Weight: 71.5 kg

DRUGS (13)
  1. TOLVAPTAN [Suspect]
     Active Substance: TOLVAPTAN
     Dosage: 30 MG, QD (IN EVENING, TITRATED)
     Route: 048
     Dates: start: 20161219, end: 20161222
  2. TOLVAPTAN [Suspect]
     Active Substance: TOLVAPTAN
     Dosage: 45 MG, QD (IN MORNING, TITRATED)
     Route: 048
     Dates: start: 20161215, end: 20161218
  3. TOLVAPTAN [Suspect]
     Active Substance: TOLVAPTAN
     Dosage: 30 MG, QD (IN EVENING, RANDOMIZED)
     Route: 048
     Dates: start: 20161223, end: 20170110
  4. TOLVAPTAN [Suspect]
     Active Substance: TOLVAPTAN
     Indication: CONGENITAL CYSTIC KIDNEY DISEASE
     Dosage: 45 MG, UNK (4 CPR/DIE)
     Route: 048
     Dates: start: 20171101, end: 20171118
  5. TOLVAPTAN [Suspect]
     Active Substance: TOLVAPTAN
     Dosage: 30 MG, QD (IN EVENING) (3 CPR/DIE)
     Route: 048
     Dates: start: 20170111, end: 20171216
  6. RAMIPRIL. [Concomitant]
     Active Substance: RAMIPRIL
     Indication: HYPERTENSION
     Dosage: 5 MG, QD
     Route: 048
     Dates: start: 201409
  7. TOLVAPTAN [Suspect]
     Active Substance: TOLVAPTAN
     Dosage: 15 MG, QD (IN EVENING, TITRATED DOSE)
     Route: 048
     Dates: start: 20161215, end: 20161218
  8. TOLVAPTAN [Suspect]
     Active Substance: TOLVAPTAN
     Dosage: 60 MG, QD (IN MORNING) (3 CPR/DIE)
     Route: 048
     Dates: start: 20170111, end: 20171216
  9. TOLVAPTAN [Suspect]
     Active Substance: TOLVAPTAN
     Dosage: 60 MG, QD (IN MORNING, TITRATED)
     Route: 048
     Dates: start: 20161219, end: 20161222
  10. TOLVAPTAN [Suspect]
     Active Substance: TOLVAPTAN
     Dosage: 90 MG, QD (IN MORNING, RANDOMIZED)
     Route: 048
     Dates: start: 20161223, end: 20170110
  11. TOLVAPTAN [Suspect]
     Active Substance: TOLVAPTAN
     Dosage: 15 MG, UNK (4 CPR/DIE)
     Route: 048
     Dates: start: 20171101, end: 20171118
  12. ESKIM [Concomitant]
     Active Substance: OMEGA-3 FATTY ACIDS
     Indication: HYPERTRIGLYCERIDAEMIA
     Dosage: 1000 MG, QD
     Route: 048
     Dates: start: 20161021
  13. ALLOPURINOL. [Concomitant]
     Active Substance: ALLOPURINOL
     Indication: HYPERURICAEMIA
     Dosage: 300 MG, QD
     Route: 048
     Dates: start: 20151014

REACTIONS (1)
  - Transaminases increased [Recovered/Resolved]

NARRATIVE: CASE EVENT DATE: 20180102
